FAERS Safety Report 4972673-6 (Version None)
Quarter: 2006Q1

REPORT INFORMATION
  Report Type: 
  Country: None (occurrence: None)
  Receive Date: 20060216
  Receipt Date: 20030616
  Transmission Date: 20060701
  Serious: Yes (Hospitalization)
  Sender: FDA-Public Use
  Company Number: 2003IM000417

PATIENT
  Age: 58 Year
  Sex: Female
  Weight: 89.8122 kg

DRUGS (17)
  1. INTERFERON GAMMA-1B [Suspect]
     Indication: OVARIAN CANCER
     Dosage: 100 UG, TIW, SUBCUTANEOUS
     Route: 058
     Dates: start: 20030219
  2. CARBOPLATIN [Suspect]
     Indication: OVARIAN CANCER
     Dosage: 410 MG, Q3W, INTRAVENOUS
     Route: 042
     Dates: start: 20030219
  3. PACLITAXEL [Suspect]
     Indication: OVARIAN CANCER
     Dosage: 350 MG, Q3W, INTRAVENOUS
     Route: 042
     Dates: start: 20030219
  4. CAMPAZINE [Concomitant]
  5. ATIVAN [Concomitant]
  6. KYTRIL [Concomitant]
  7. DECADRON [Concomitant]
  8. BENADRYL [Concomitant]
  9. CIPRO [Concomitant]
  10. MAXZIDE [Concomitant]
  11. HUMULIN 70/30 [Concomitant]
  12. SYNTHROID [Concomitant]
  13. ELAVIL [Concomitant]
  14. ACTOS [Concomitant]
  15. COZAAR [Concomitant]
  16. ALTACE [Concomitant]
  17. PROAMATINE [Concomitant]

REACTIONS (1)
  - ORTHOSTATIC HYPOTENSION [None]
